FAERS Safety Report 16849790 (Version 1)
Quarter: 2019Q3

REPORT INFORMATION
  Report Type: Spontaneous
  Country: US (occurrence: US)
  Receive Date: 20190925
  Receipt Date: 20190925
  Transmission Date: 20191005
  Serious: No
  Sender: FDA-Public Use
  Company Number: US-MYLANLABS-2019M1085494

PATIENT
  Sex: Female
  Weight: 70 kg

DRUGS (2)
  1. ESTRADIOL. [Suspect]
     Active Substance: ESTRADIOL
     Dosage: 0.5 GRAM,2-3X PER WEEK
     Route: 067
     Dates: start: 201812
  2. ESTRADIOL. [Suspect]
     Active Substance: ESTRADIOL
     Indication: VULVOVAGINAL DRYNESS
     Dosage: 1 GRAM,2X WEEKLY AT NIGHT
     Route: 067

REACTIONS (2)
  - Product quality issue [Unknown]
  - Vulvovaginal burning sensation [Recovered/Resolved]
